FAERS Safety Report 13167656 (Version 1)
Quarter: 2017Q1

REPORT INFORMATION
  Report Type: Spontaneous
  Country: US (occurrence: US)
  Receive Date: 20170131
  Receipt Date: 20170131
  Transmission Date: 20170428
  Serious: No
  Sender: FDA-Public Use
  Company Number: US-009507513-1701USA013521

PATIENT
  Age: 21 Year
  Sex: Female
  Weight: 78.01 kg

DRUGS (1)
  1. NEXPLANON [Suspect]
     Active Substance: ETONOGESTREL
     Indication: MENSTRUAL DISORDER
     Dosage: 1 IMPLANT EVERY 3 YEARS
     Route: 059
     Dates: start: 20170112

REACTIONS (2)
  - Metrorrhagia [Unknown]
  - Sleep disorder [Unknown]

NARRATIVE: CASE EVENT DATE: 201701
